FAERS Safety Report 9168718 (Version 1)
Quarter: 2013Q1

REPORT INFORMATION
  Report Type: Spontaneous
  Country: GB (occurrence: None)
  Receive Date: 20130305
  Receipt Date: 20130305
  Transmission Date: 20140127
  Serious: Yes (Life-Threatening)
  Sender: FDA-Public Use
  Company Number: 2013SUN00203

PATIENT
  Age: 65 Year
  Sex: Female
  Weight: 110 kg

DRUGS (6)
  1. LETROZOLE [Suspect]
     Indication: BREAST CANCER
     Route: 048
     Dates: start: 201208
  2. CITALOPRAM (CITALOPRAM) [Concomitant]
  3. DICLOFENAC (DICLOFENAC) [Concomitant]
  4. LEVOTHYROXINE (LEVOTHYROXINE) [Concomitant]
  5. RABEPRAZOLE (RABEPRAZOLE) [Concomitant]
  6. VALSARTAN (VALSARTAN) [Concomitant]

REACTIONS (2)
  - Fall [None]
  - Deep vein thrombosis [None]
